FAERS Safety Report 6424991-2 (Version None)
Quarter: 2009Q4

REPORT INFORMATION
  Report Type: 
  Country: None (occurrence: None)
  Receive Date: 20091103
  Receipt Date: 20091021
  Transmission Date: 20100525
  Serious: Yes (Other)
  Sender: FDA-Public Use
  Company Number: GB-PFIZER INC-2009251592

PATIENT
  Age: 87 Year
  Sex: Male
  Weight: 61 kg

DRUGS (10)
  1. GABAPENTIN [Suspect]
     Indication: NEURALGIA
     Dosage: 300 MG, 3X/DAY
     Dates: start: 20080827, end: 20090701
  2. OXYBUTYNIN HYDROCHLORIDE [Concomitant]
     Dosage: 5 MG, 1X/DAY AT NIGHT
     Dates: start: 20090709
  3. PREGABALIN [Concomitant]
     Indication: NEURALGIA
     Dosage: 75 MG, 2X/DAY
     Dates: start: 20090622
  4. PREDNISOLONE [Concomitant]
     Dosage: 1 MG, 2X/DAY
     Dates: start: 20081105
  5. OMEPRAZOLE [Concomitant]
     Dosage: 10 MG, 1X/DAY
     Dates: start: 20081105
  6. ACICLOVIR [Concomitant]
     Dosage: 800 MG, ONE TABLET 5XDAILY
     Dates: start: 20090227
  7. FUSIDIC ACID [Concomitant]
     Dosage: 1 DF, 1 %, 2X/DAY IN LEFT EYE
     Route: 047
     Dates: start: 20080216
  8. TAMSULOSIN HYDROCHLORIDE [Concomitant]
     Dosage: 400 MCG, 1X/DAY
     Dates: start: 20080911
  9. BENDROFLUMETHIAZIDE [Concomitant]
     Dosage: 2.5 MG, 1X/DAY
     Dates: start: 20040405
  10. INFLUENZA VACCINE [Concomitant]
     Dosage: UNK
     Dates: start: 20080925

REACTIONS (18)
  - ACTINIC KERATOSIS [None]
  - ATRIAL TACHYCARDIA [None]
  - BASAL CELL CARCINOMA [None]
  - BLADDER OBSTRUCTION [None]
  - CONJUNCTIVITIS [None]
  - DRUG EFFECT DECREASED [None]
  - FALL [None]
  - H1N1 INFLUENZA [None]
  - LIP DISORDER [None]
  - LIPOMA [None]
  - LOSS OF CONSCIOUSNESS [None]
  - MELANOCYTIC NAEVUS [None]
  - MOUTH INJURY [None]
  - PAIN IN EXTREMITY [None]
  - POROCARCINOMA [None]
  - SUPRAVENTRICULAR EXTRASYSTOLES [None]
  - SYNCOPE [None]
  - VENTRICULAR EXTRASYSTOLES [None]
